FAERS Safety Report 11123916 (Version 1)
Quarter: 2015Q2

REPORT INFORMATION
  Report Type: Spontaneous
  Country: TW (occurrence: TW)
  Receive Date: 20150520
  Receipt Date: 20150520
  Transmission Date: 20150821
  Serious: Yes (Hospitalization, Other)
  Sender: FDA-Public Use
  Company Number: TW-PAR PHARMACEUTICAL, INC-2015SCPR013970

PATIENT

DRUGS (5)
  1. LITHIUM. [Interacting]
     Active Substance: LITHIUM
     Indication: MANIA
     Dosage: 300 MG, TID
     Route: 065
  2. LITHIUM. [Interacting]
     Active Substance: LITHIUM
     Dosage: 400 MG, ONE TO TWO TABLETS DAILY
     Route: 065
  3. TRAMADOL AND ACETAMINOPHEN [Suspect]
     Active Substance: ACETAMINOPHEN\TRAMADOL HYDROCHLORIDE
     Indication: ARTHRALGIA
     Dosage: 1 DF, TID
     Route: 065
  4. LITHIUM. [Interacting]
     Active Substance: LITHIUM
     Indication: BIPOLAR I DISORDER
     Dosage: 3 DF, OD
     Route: 065
  5. LITHIUM. [Interacting]
     Active Substance: LITHIUM
     Dosage: 800 MG, DAILY. TWO TABLETS OF 400 MG
     Route: 065

REACTIONS (3)
  - Serotonin syndrome [Recovered/Resolved]
  - Drug interaction [Unknown]
  - Psychotic disorder [Recovered/Resolved]
